FAERS Safety Report 4785580-9 (Version None)
Quarter: 2005Q4

REPORT INFORMATION
  Report Type: 
  Country: None (occurrence: None)
  Receive Date: 20051003
  Receipt Date: 20050826
  Transmission Date: 20060501
  Serious: Yes (Other)
  Sender: FDA-Public Use
  Company Number: JP-GLAXOSMITHKLINE-B0391880A

PATIENT
  Age: 52 Year
  Sex: Male
  Weight: 64 kg

DRUGS (18)
  1. ALKERAN [Suspect]
     Indication: STEM CELL TRANSPLANT
     Route: 042
     Dates: start: 20050528, end: 20050529
  2. GRAN [Suspect]
     Route: 042
     Dates: start: 20050602, end: 20050613
  3. LOXONIN [Suspect]
     Route: 048
     Dates: start: 20050605, end: 20050613
  4. ROPION [Suspect]
     Route: 042
     Dates: start: 20050607, end: 20050613
  5. VOLTAREN [Suspect]
     Dosage: 75MG PER DAY
     Route: 048
     Dates: start: 20050607, end: 20050613
  6. IOPAMIDOL [Suspect]
     Dosage: 80ML SINGLE DOSE
     Dates: start: 20050613, end: 20050613
  7. SOLU-CORTEF [Concomitant]
  8. HAPTOGLOBIN [Concomitant]
  9. KYTRIL [Concomitant]
  10. IMMUNE GLOBULIN INTRAVENOUS (HUMAN) [Concomitant]
  11. MAXIPIME [Concomitant]
  12. MEROPEN [Concomitant]
  13. PRODIF [Concomitant]
  14. CRAVIT [Concomitant]
  15. FUNGUARD [Concomitant]
  16. VANCOMYCIN [Concomitant]
  17. COTRIM [Concomitant]
  18. PARIET [Concomitant]

REACTIONS (5)
  - DIARRHOEA [None]
  - EXTRAMEDULLARY HAEMOPOIESIS [None]
  - HEPATITIS ACUTE [None]
  - HYPERSENSITIVITY [None]
  - RENAL FAILURE ACUTE [None]
